FAERS Safety Report 8553333-1 (Version None)
Quarter: 2012Q3

REPORT INFORMATION
  Report Type: 
  Country: None (occurrence: None)
  Receive Date: 20120731
  Receipt Date: 20100914
  Transmission Date: 20120928
  Serious: Yes (Hospitalization, Other)
  Sender: FDA-Public Use
  Company Number: US-BAYER-201025807NA

PATIENT
  Age: 28 Year
  Sex: Female
  Weight: 90 kg

DRUGS (4)
  1. YAZ [Suspect]
     Indication: PREMENSTRUAL SYNDROME
     Dosage: UNK
     Route: 048
     Dates: start: 20060101, end: 20070601
  2. PROTONIX [Concomitant]
     Dosage: UNK
     Dates: start: 20070402
  3. CLARITIN [Concomitant]
  4. IBUPROFEN (ADVIL) [Concomitant]

REACTIONS (15)
  - CHOLELITHIASIS [None]
  - NAUSEA [None]
  - DIARRHOEA [None]
  - DYSPEPSIA [None]
  - GASTROOESOPHAGEAL REFLUX DISEASE [None]
  - PREGNANCY ON ORAL CONTRACEPTIVE [None]
  - BACK PAIN [None]
  - BILIARY COLIC [None]
  - LYMPHADENOPATHY [None]
  - VOMITING [None]
  - ABDOMINAL PAIN UPPER [None]
  - CHOLECYSTITIS CHRONIC [None]
  - GALLBLADDER CHOLESTEROLOSIS [None]
  - MUSCULOSKELETAL PAIN [None]
  - ABDOMINAL DISTENSION [None]
